FAERS Safety Report 14609786 (Version 1)
Quarter: 2018Q1

REPORT INFORMATION
  Report Type: Report from Study
  Country: DE (occurrence: DE)
  Receive Date: 20180307
  Receipt Date: 20180307
  Transmission Date: 20180509
  Serious: Yes (Other)
  Sender: FDA-Public Use
  Company Number: DE-PFIZER INC-2018092652

PATIENT
  Age: 56 Year
  Sex: Female
  Weight: 69 kg

DRUGS (18)
  1. FEXOFENADINE [Concomitant]
     Active Substance: FEXOFENADINE\FEXOFENADINE HYDROCHLORIDE
     Dosage: 150 MG, UNK
     Route: 048
     Dates: start: 20141115
  2. DOCETAXEL. [Suspect]
     Active Substance: DOCETAXEL
     Dosage: 100 MG, EVERY 3 WEEKS
     Route: 042
     Dates: start: 20140117
  3. DOCETAXEL. [Suspect]
     Active Substance: DOCETAXEL
     Dosage: 101 MG, EVERY 3 WEEKS
     Route: 042
     Dates: start: 20140207
  4. PERTUZUMAB. [Suspect]
     Active Substance: PERTUZUMAB
     Dosage: 420 MG, EVERY 3 WEEKS
     Route: 042
     Dates: start: 20131115, end: 20131115
  5. HERCEPTIN [Suspect]
     Active Substance: TRASTUZUMAB
     Dosage: 402 MG, EVERY 3 WEEKS
     Route: 042
     Dates: start: 20131115
  6. HERCEPTIN [Suspect]
     Active Substance: TRASTUZUMAB
     Dosage: 378 MG, EVERY 3 WEEKS
     Route: 042
     Dates: start: 20131227
  7. HERCEPTIN [Suspect]
     Active Substance: TRASTUZUMAB
     Dosage: 378 MG, UNK
     Route: 042
     Dates: start: 20140117
  8. DOCETAXEL. [Suspect]
     Active Substance: DOCETAXEL
     Indication: HER-2 POSITIVE BREAST CANCER
     Dosage: 130 MG, EVERY 3 WEEKS
     Route: 042
     Dates: start: 20131025
  9. PERTUZUMAB. [Suspect]
     Active Substance: PERTUZUMAB
     Indication: HER-2 POSITIVE BREAST CANCER
     Dosage: 840 MG, SINGLE
     Route: 042
     Dates: start: 20131025, end: 20131025
  10. HERCEPTIN [Suspect]
     Active Substance: TRASTUZUMAB
     Indication: HER-2 POSITIVE BREAST CANCER
     Dosage: 552 MG, EVERY 3 WEEKS
     Route: 042
     Dates: start: 20131025
  11. DOCETAXEL. [Suspect]
     Active Substance: DOCETAXEL
     Dosage: 125 MG, EVERY 3 WEEKS
     Route: 042
     Dates: start: 20131227
  12. ALOXI [Concomitant]
     Active Substance: PALONOSETRON HYDROCHLORIDE
     Dosage: 250 UG, AS NEEDED
     Route: 042
     Dates: start: 20131025, end: 20140207
  13. HERCEPTIN [Suspect]
     Active Substance: TRASTUZUMAB
     Dosage: 384 MG, EVERY 3 WEEKS
     Route: 042
     Dates: start: 20131206
  14. HERCEPTIN [Suspect]
     Active Substance: TRASTUZUMAB
     Dosage: 390 MG, EVERY 3 WEEKS
     Route: 042
     Dates: start: 20140207
  15. DOCETAXEL. [Suspect]
     Active Substance: DOCETAXEL
     Dosage: 126 MG, EVERY 3 WEEKS
     Route: 042
     Dates: start: 20131206
  16. ADVANTAN [Concomitant]
     Active Substance: METHYLPREDNISOLONE ACEPONATE
     Dosage: 50 G, UNK
  17. DOCETAXEL. [Suspect]
     Active Substance: DOCETAXEL
     Dosage: 128 MG, EVERY 3 WEEKS
     Route: 042
     Dates: start: 20131115
  18. XGEVA [Concomitant]
     Active Substance: DENOSUMAB
     Indication: METASTASES TO BONE
     Dosage: 120 MG, UNK
     Route: 058
     Dates: start: 20131015

REACTIONS (5)
  - Cardiovascular disorder [Recovered/Resolved]
  - Vomiting [Recovered/Resolved]
  - Dizziness [Recovered/Resolved]
  - Neutropenia [Recovered/Resolved]
  - Paraesthesia [Recovered/Resolved]

NARRATIVE: CASE EVENT DATE: 20131101
